FAERS Safety Report 9687862 (Version 3)
Quarter: 2014Q1

REPORT INFORMATION
  Report Type: Spontaneous
  Country: IS (occurrence: IS)
  Receive Date: 20131114
  Receipt Date: 20140218
  Transmission Date: 20141002
  Serious: Yes (Other)
  Sender: FDA-Public Use
  Company Number: IS-JNJFOC-20131104470

PATIENT
  Sex: 0

DRUGS (1)
  1. CONCERTA [Suspect]
     Indication: ATTENTION DEFICIT/HYPERACTIVITY DISORDER
     Route: 065

REACTIONS (7)
  - Drug abuse [Unknown]
  - Dependence [Unknown]
  - Psychotic disorder [Unknown]
  - Sleep disorder [Unknown]
  - Anxiety [Unknown]
  - Drug ineffective [Unknown]
  - Incorrect route of drug administration [Unknown]
